FAERS Safety Report 9321663 (Version 2)
Quarter: 2013Q2

REPORT INFORMATION
  Report Type: Spontaneous
  Country: DK (occurrence: JP)
  Receive Date: 20130531
  Receipt Date: 20130620
  Transmission Date: 20140414
  Serious: Yes (Hospitalization)
  Sender: FDA-Public Use
  Company Number: JP-FRI-1000045486

PATIENT
  Age: 57 Year
  Sex: Male
  Weight: 80 kg

DRUGS (19)
  1. LEXAPRO [Suspect]
     Indication: DEPRESSION
     Dosage: 10 MG
     Route: 048
     Dates: start: 20130122, end: 20130325
  2. THEODUR [Suspect]
     Indication: CHRONIC OBSTRUCTIVE PULMONARY DISEASE
     Route: 048
  3. SEKINARIN [Suspect]
     Indication: CHRONIC OBSTRUCTIVE PULMONARY DISEASE
     Route: 048
  4. ZYPREXA [Concomitant]
     Dosage: 5 MG
     Route: 048
     Dates: start: 20130226
  5. CYMBALTA [Concomitant]
     Dosage: 20 MG
     Route: 048
     Dates: start: 20130212
  6. REFLEX [Concomitant]
     Dosage: 15 MG
     Route: 048
     Dates: start: 20130118
  7. LIMAS [Concomitant]
     Dosage: 400 MG
     Route: 048
     Dates: start: 20130312
  8. DEPAKENE-R [Concomitant]
     Dosage: 400 MG
     Route: 048
     Dates: start: 20130129
  9. HORIZON [Concomitant]
     Dosage: 10 MG
     Route: 048
     Dates: start: 20130129
  10. WYPAX [Concomitant]
     Dosage: 1 MG
     Route: 048
     Dates: start: 20130122
  11. AMLODIPINE [Concomitant]
     Indication: HYPERTENSION
     Dosage: 10 MG
     Route: 048
  12. LIPITOR [Concomitant]
     Indication: DYSLIPIDAEMIA
     Dosage: 5 MG
     Route: 048
  13. FLUITRAN [Concomitant]
     Dosage: 2 MG
     Route: 048
  14. LAMISIL [Concomitant]
     Indication: TINEA INFECTION
     Dosage: 125 MG
     Route: 048
  15. IMIDAPRIL HYDROCHLORIDE [Concomitant]
     Dosage: 5 MG
     Route: 048
  16. CERNILTON [Concomitant]
     Dosage: 6 DF
     Route: 048
  17. LANSOPRAZOLE [Concomitant]
     Dosage: 15 MG
     Route: 048
  18. ADETPHOS [Concomitant]
     Dosage: 300 MG
     Route: 048
  19. BETAHISTINE MESILATE [Concomitant]
     Dosage: 36 MG
     Route: 048

REACTIONS (1)
  - Rhabdomyolysis [Recovered/Resolved]
